FAERS Safety Report 6215480-9 (Version None)
Quarter: 2009Q2

REPORT INFORMATION
  Report Type: 
  Country: None (occurrence: None)
  Receive Date: 20090603
  Receipt Date: 20090527
  Transmission Date: 20091009
  Serious: Yes (Life-Threatening, Hospitalization)
  Sender: FDA-Public Use
  Company Number: GXKR2009DE06265

PATIENT
  Age: 73 Year
  Sex: Female
  Weight: 74.8 kg

DRUGS (12)
  1. HYDROCHLOROTHIAZIDE [Suspect]
     Indication: HYPERTENSION
     Dosage: 25 MG, QD, ORAL
     Route: 048
     Dates: start: 20070101, end: 20081107
  2. RAMIPRIL [Suspect]
     Indication: HYPERTENSION
     Dosage: 1 DF, QD, ORAL
     Route: 048
     Dates: start: 20070101, end: 20081107
  3. DIHYDROTACHYSTEROL [Suspect]
     Indication: HYPOPARATHYROIDISM
     Dosage: ORAL
     Route: 048
     Dates: start: 19980101, end: 20081107
  4. ASPIRIN [Suspect]
     Indication: ISCHAEMIC HEART DISEASE PROPHYLAXIS
     Dosage: 100 MG, QD, ORAL
     Route: 048
     Dates: start: 20020101
  5. METO ABZ COMP. (HYDROCHLOROTHIAZIDE, METOPROLOL TARTRATE) [Suspect]
     Indication: HYPERTENSION
     Dosage: 50 MG, BID, ORAL
     Route: 048
     Dates: start: 20020101
  6. SPIRONOLACTONE [Suspect]
     Indication: CARDIAC FAILURE
     Dosage: 25 MG, QD, ORAL
     Route: 048
     Dates: start: 20080501, end: 20081107
  7. TORSEMIDE [Suspect]
     Indication: CARDIAC FAILURE
     Dosage: 10 MG, QD, ORAL
     Route: 048
     Dates: start: 20080501, end: 20081107
  8. ALLOPURINOL ^1A FARMA^ (ALLOPURINOL) [Concomitant]
  9. AVANDAMET [Concomitant]
  10. L-THYROXIN ^HENNING BERLIN^ (LEVOTHYROXINE SODIUM) [Concomitant]
  11. RANIBETA (RANITIDINE) [Concomitant]
  12. SIMVASTATIN [Concomitant]

REACTIONS (3)
  - DRUG INTERACTION [None]
  - HYPERCALCAEMIA [None]
  - RENAL FAILURE ACUTE [None]
